FAERS Safety Report 4327827-9 (Version None)
Quarter: 2004Q1

REPORT INFORMATION
  Report Type: 
  Country: None (occurrence: None)
  Receive Date: 20040325
  Receipt Date: 20040315
  Transmission Date: 20041129
  Serious: No
  Sender: FDA-Public Use
  Company Number: 2004UW04963

PATIENT
  Sex: Female

DRUGS (1)
  1. NEXIUM [Suspect]
     Indication: GASTROOESOPHAGEAL REFLUX DISEASE
     Dosage: 40 MG ONCE PO
     Route: 048
     Dates: start: 20040308, end: 20040308

REACTIONS (6)
  - HEADACHE [None]
  - HYPERSENSITIVITY [None]
  - PALPITATIONS [None]
  - SWOLLEN TONGUE [None]
  - TONGUE BLACK HAIRY [None]
  - TONGUE DISCOLOURATION [None]
